FAERS Safety Report 14933946 (Version 1)
Quarter: 2018Q2

REPORT INFORMATION
  Report Type: Spontaneous
  Country: US (occurrence: US)
  Receive Date: 20180504
  Receipt Date: 20180504
  Transmission Date: 20180711
  Serious: No
  Sender: FDA-Public Use
  Company Number: None

PATIENT
  Age: 1 Year
  Sex: Female

DRUGS (5)
  1. ZENPEP [Suspect]
     Active Substance: PANCRELIPASE AMYLASE\PANCRELIPASE LIPASE\PANCRELIPASE PROTEASE
     Indication: CYSTIC FIBROSIS
     Route: 048
     Dates: start: 20170405
  2. VIT. D [Concomitant]
  3. AQUADEK [Concomitant]
  4. CETIRIZINE [Concomitant]
     Active Substance: CETIRIZINE HYDROCHLORIDE
  5. IPRATROPIUM NASAL [Concomitant]

REACTIONS (4)
  - Weight increased [None]
  - Diarrhoea [None]
  - Therapy change [None]
  - Drug ineffective [None]

NARRATIVE: CASE EVENT DATE: 2018
